FAERS Safety Report 4283683-9 (Version None)
Quarter: 2004Q1

REPORT INFORMATION
  Report Type: 
  Country: None (occurrence: None)
  Receive Date: 20040115
  Receipt Date: 20030221
  Transmission Date: 20041129
  Serious: Yes (Other)
  Sender: FDA-Public Use
  Company Number: NSADSS2003008284

PATIENT
  Age: 39 Year
  Sex: Female
  Weight: 72.1219 kg

DRUGS (2)
  1. DOXIL [Suspect]
     Indication: BREAST CANCER
     Dosage: 30 MG/M2; INTRAVENOUS DRIP(SEE IMAGE)
     Route: 041
     Dates: start: 20030117, end: 20030210
  2. DOXIL [Suspect]
     Indication: BREAST CANCER
     Dosage: 30 MG/M2; INTRAVENOUS DRIP(SEE IMAGE)
     Route: 041
     Dates: start: 20030117, end: 20030210

REACTIONS (7)
  - ABDOMINAL PAIN UPPER [None]
  - FAECES PALE [None]
  - HYPERBILIRUBINAEMIA [None]
  - JAUNDICE [None]
  - LIVER FUNCTION TEST ABNORMAL [None]
  - PRURITUS [None]
  - URINE ANALYSIS ABNORMAL [None]
